FAERS Safety Report 5182020-5 (Version None)
Quarter: 2006Q4

REPORT INFORMATION
  Report Type: 
  Country: None (occurrence: None)
  Receive Date: 20061220
  Receipt Date: 20060420
  Transmission Date: 20070319
  Serious: No
  Sender: FDA-Public Use
  Company Number: US-GLAXOSMITHKLINE-A0602569A

PATIENT
  Age: 47 Year
  Sex: Female

DRUGS (1)
  1. COMMIT [Suspect]
     Indication: DRUG WITHDRAWAL MAINTENANCE THERAPY
     Dates: start: 20060102, end: 20060418

REACTIONS (1)
  - URTICARIA [None]
